FAERS Safety Report 21492332 (Version 1)
Quarter: 2022Q4

REPORT INFORMATION
  Report Type: Report from Study
  Country: AR (occurrence: AR)
  Receive Date: 20221021
  Receipt Date: 20221021
  Transmission Date: 20230113
  Serious: Yes (Other)
  Sender: FDA-Public Use
  Company Number: AR-ABBVIE-4170406

PATIENT
  Age: 59 Year
  Sex: Male

DRUGS (1)
  1. HUMIRA [Suspect]
     Active Substance: ADALIMUMAB
     Indication: Psoriasis
     Dosage: 40MG
     Route: 058
     Dates: start: 20150429, end: 202208

REACTIONS (1)
  - Chronic pigmented purpura [Not Recovered/Not Resolved]

NARRATIVE: CASE EVENT DATE: 20220801
